FAERS Safety Report 11792699 (Version 1)
Quarter: 2015Q4

REPORT INFORMATION
  Report Type: Spontaneous
  Country: ES (occurrence: None)
  Receive Date: 20151130
  Receipt Date: 20151130
  Transmission Date: 20160305
  Serious: Yes (Other)
  Sender: FDA-Public Use
  Company Number: 2015RR-106523

PATIENT
  Age: 69 Year
  Sex: Female

DRUGS (6)
  1. AMPICILLIN (AMPICILLIN) UNKNOWN [Suspect]
     Active Substance: AMPICILLIN
     Indication: ALLERGY TEST
     Route: 023
  2. PENICILLIN G (PENICILLIN G) UNKNOWN [Suspect]
     Active Substance: PENICILLIN G
     Indication: ALLERGY TEST
     Route: 023
  3. AMOXICILLIN/CLAVULANIC ACID (AMOXICILLIN, CLAVULANIC ACID) UNKNOWN [Suspect]
     Active Substance: AMOXICILLIN\CLAVULANIC ACID
     Indication: ALLERGY TEST
     Route: 023
  4. CEFUROXIME (CEFUROXIME) UNKNOWN [Suspect]
     Active Substance: CEFUROXIME
     Indication: ALLERGY TEST
     Route: 023
  5. CEFIXIME (CEFIXIME) UNKNOWN [Suspect]
     Active Substance: CEFIXIME
     Indication: ALLERGY TEST
     Route: 023
  6. AMOXICILLIN (AMOXICILLIN) UNKNOWN [Suspect]
     Active Substance: AMOXICILLIN
     Indication: ALLERGY TEST
     Route: 023

REACTIONS (1)
  - Anaphylactic reaction [None]
